FAERS Safety Report 6758856-3 (Version None)
Quarter: 2010Q2

REPORT INFORMATION
  Report Type: 
  Country: None (occurrence: None)
  Receive Date: 20100604
  Receipt Date: 20100520
  Transmission Date: 20101027
  Serious: Yes (Other)
  Sender: FDA-Public Use
  Company Number: 009562

PATIENT
  Sex: Male

DRUGS (6)
  1. CERTOLIZUMAB PEGOL (GERTOLIZUMAB PEGOL) [Suspect]
     Indication: RHEUMATOID ARTHRITIS
     Dosage: 200 MG 1X/2 WEEKS, SUBCUTANEOUS
     Route: 058
     Dates: start: 20091019, end: 20100308
  2. PREDNISOLONE [Suspect]
     Dosage: 7.5 MG QD ORAL
     Route: 048
     Dates: start: 20000515
  3. BUCILLAMINE (BUCILLAMINE) [Suspect]
     Dosage: 200 MG QD ORAL
     Route: 048
     Dates: start: 20000501
  4. SALAZOSULFAPYRIDINE (SALAZOSULFAPYRIDINE) [Suspect]
     Dosage: 1000 MG QD ORAL
  5. DICLOFENAC SODIUM [Suspect]
     Dosage: 75 MG QD ORAL
     Route: 048
     Dates: start: 20000807
  6. ECABET MONOSODIUM (ECABET SODIUM) [Suspect]
     Dosage: 3 G QD ORAL
     Route: 048
     Dates: start: 20000501

REACTIONS (2)
  - ABDOMINAL PAIN UPPER [None]
  - CALCULUS URINARY [None]
